FAERS Safety Report 21158684 (Version 1)
Quarter: 2022Q3

REPORT INFORMATION
  Report Type: Spontaneous
  Country: US (occurrence: US)
  Receive Date: 20220802
  Receipt Date: 20220802
  Transmission Date: 20221027
  Serious: Yes (Hospitalization, Other)
  Sender: FDA-Public Use
  Company Number: US-AUROBINDO-AUR-APL-2022-030001

PATIENT
  Age: 28 Year
  Sex: Female

DRUGS (2)
  1. CLONIDINE [Suspect]
     Active Substance: CLONIDINE
     Indication: Hypertension
     Dosage: 30 DOSAGE FORM (30 PILLS OF CLONIDINE)
     Route: 065
  2. CLONIDINE [Suspect]
     Active Substance: CLONIDINE
     Indication: Attention deficit hyperactivity disorder

REACTIONS (11)
  - Left ventricular failure [Recovered/Resolved]
  - Arteriospasm coronary [Recovered/Resolved]
  - Suicide attempt [Unknown]
  - Bradycardia [Recovered/Resolved]
  - Acute myocardial infarction [Recovered/Resolved]
  - Congestive cardiomyopathy [Recovered/Resolved]
  - Hypertension [Recovered/Resolved]
  - Left ventricular hypertrophy [Recovered/Resolved]
  - Left ventricular dysfunction [Recovered/Resolved]
  - Overdose [Unknown]
  - Off label use [Unknown]
